FAERS Safety Report 10149647 (Version 1)
Quarter: 2014Q2

REPORT INFORMATION
  Report Type: Spontaneous
  Country: US (occurrence: None)
  Receive Date: 20140501
  Receipt Date: 20140501
  Transmission Date: 20141212
  Serious: Yes (Life-Threatening)
  Sender: FDA-Public Use
  Company Number: None

PATIENT
  Age: 53 Year
  Sex: Male
  Weight: 133.81 kg

DRUGS (2)
  1. LEXISCAN [Suspect]
     Indication: CARDIAC STRESS TEST
     Dosage: INTO A VEIN
     Dates: start: 20140424
  2. ASPIRIN [Concomitant]

REACTIONS (2)
  - Urinary incontinence [None]
  - Cardiac arrest [None]
